FAERS Safety Report 10181067 (Version 3)
Quarter: 2014Q4

REPORT INFORMATION
  Report Type: Spontaneous
  Country: US (occurrence: US)
  Receive Date: 20140519
  Receipt Date: 20141006
  Transmission Date: 20150528
  Serious: No
  Sender: FDA-Public Use
  Company Number: US-AMGEN INC.-USASP2013080409

PATIENT
  Age: 57 Year
  Sex: Female
  Weight: 113 kg

DRUGS (1)
  1. PROLIA [Suspect]
     Active Substance: DENOSUMAB
     Indication: OSTEOPOROSIS POSTMENOPAUSAL
     Dosage: 60 MG, Q6MO
     Route: 058
     Dates: start: 20130531

REACTIONS (6)
  - Jaw disorder [Unknown]
  - Hypoaesthesia [Unknown]
  - Pain in jaw [Not Recovered/Not Resolved]
  - Ear pain [Unknown]
  - Lip disorder [Unknown]
  - Joint crepitation [Not Recovered/Not Resolved]

NARRATIVE: CASE EVENT DATE: 2013
